FAERS Safety Report 24627288 (Version 1)
Quarter: 2024Q4

REPORT INFORMATION
  Report Type: Spontaneous
  Country: GB (occurrence: GB)
  Receive Date: 20241116
  Receipt Date: 20241116
  Transmission Date: 20250114
  Serious: Yes (Other)
  Sender: AUROBINDO
  Company Number: GB-MHRA-MED-202411021318570280-PYJBZ

PATIENT
  Sex: Female
  Weight: 13 kg

DRUGS (1)
  1. NITROFURANTOIN [Suspect]
     Active Substance: NITROFURANTOIN
     Indication: Urinary tract infection
     Dosage: UNK, TWO TIMES A DAY
     Route: 065
     Dates: start: 20240803

REACTIONS (2)
  - Brain fog [Unknown]
  - Sinus congestion [Not Recovered/Not Resolved]
